FAERS Safety Report 9228813 (Version 9)
Quarter: 2014Q1

REPORT INFORMATION
  Report Type: Report from Study
  Country: IL (occurrence: IL)
  Receive Date: 20130412
  Receipt Date: 20140210
  Transmission Date: 20141002
  Serious: Yes (Life-Threatening, Hospitalization)
  Sender: FDA-Public Use
  Company Number: IL-ROCHE-1148507

PATIENT
  Age: 75 Year
  Sex: Male
  Weight: 84 kg

DRUGS (10)
  1. VISMODEGIB [Suspect]
     Indication: BASAL CELL CARCINOMA
     Dosage: LAST DOSE PRIOR TO SAE: 20/OCT/2012
     Route: 048
     Dates: start: 20120910, end: 20121023
  2. CLEXANE [Suspect]
     Indication: THROMBOSIS
     Route: 065
     Dates: start: 201202, end: 20121021
  3. NORVASC [Concomitant]
     Indication: HYPERTENSION
     Route: 065
     Dates: start: 200001
  4. SERETIDE [Concomitant]
     Indication: CHRONIC OBSTRUCTIVE PULMONARY DISEASE
     Dosage: DAILY DOSE: 50/250 MICROGRAMS
     Route: 065
     Dates: start: 197707
  5. THEOTARD [Concomitant]
     Indication: CHRONIC OBSTRUCTIVE PULMONARY DISEASE
     Route: 065
     Dates: start: 197707
  6. FLIXONASE [Concomitant]
     Indication: CHRONIC OBSTRUCTIVE PULMONARY DISEASE
     Route: 065
     Dates: start: 200201
  7. PREGABALIN [Concomitant]
     Indication: PAIN
     Route: 065
     Dates: start: 20121025
  8. GLAUTAN [Concomitant]
     Indication: PROPHYLAXIS
     Route: 065
     Dates: start: 201101
  9. ROKACET [Concomitant]
     Indication: PAIN
     Route: 065
     Dates: start: 20121001, end: 20121025
  10. ALENDRONIC ACID [Concomitant]
     Dosage: MAXIBONE?INDICATION : BONE DENSITY
     Route: 065
     Dates: start: 201001

REACTIONS (1)
  - Arterial haemorrhage [Recovered/Resolved]
